FAERS Safety Report 5915219-8 (Version None)
Quarter: 2008Q4

REPORT INFORMATION
  Report Type: 
  Country: None (occurrence: None)
  Receive Date: 20081010
  Receipt Date: 20081001
  Transmission Date: 20090506
  Serious: Yes (Other)
  Sender: FDA-Public Use
  Company Number: JP-MERCK-0809USA01895

PATIENT
  Age: 55 Year
  Sex: Male

DRUGS (3)
  1. ZETIA [Suspect]
     Indication: HYPERLIPIDAEMIA
     Route: 048
     Dates: start: 20080411, end: 20080906
  2. CRESTOR [Suspect]
     Indication: HYPERLIPIDAEMIA
     Route: 048
     Dates: start: 20080411, end: 20080906
  3. [COMPOSITION UNSPECIFIED] [Suspect]
     Indication: CONSTIPATION
     Route: 048
     Dates: start: 20080411, end: 20080906

REACTIONS (1)
  - HEPATIC FUNCTION ABNORMAL [None]
